FAERS Safety Report 6678540-4 (Version None)
Quarter: 2010Q2

REPORT INFORMATION
  Report Type: 
  Country: None (occurrence: None)
  Receive Date: 20100413
  Receipt Date: 20091218
  Transmission Date: 20101027
  Serious: Yes (Hospitalization)
  Sender: FDA-Public Use
  Company Number: JP-JNJFOC-20090905068

PATIENT
  Sex: Female

DRUGS (2)
  1. CRAVIT [Suspect]
     Indication: ENTERITIS INFECTIOUS
     Route: 048
     Dates: start: 20090909, end: 20090911
  2. BIOFERMIN R [Concomitant]
     Indication: ENTERITIS INFECTIOUS
     Route: 048

REACTIONS (1)
  - MELAENA [None]
